FAERS Safety Report 6722333-6 (Version None)
Quarter: 2010Q2

REPORT INFORMATION
  Report Type: 
  Country: None (occurrence: None)
  Receive Date: 20100512
  Receipt Date: 20100510
  Transmission Date: 20101027
  Serious: Yes (Other)
  Sender: FDA-Public Use
  Company Number: GXKR2010DE05173

PATIENT
  Sex: Male

DRUGS (2)
  1. BISOPROLOL SANDOZ (NGX) [Suspect]
     Indication: HYPERTENSION
     Dosage: 5 MG, BID
     Route: 048
  2. ENALAPRIL MALEATE [Suspect]
     Indication: HYPERTENSION
     Dosage: 10 MG, BID
     Route: 048

REACTIONS (4)
  - ASTHENIA [None]
  - HEART RATE [None]
  - MORPHOEA [None]
  - PITYRIASIS RUBRA PILARIS [None]
